FAERS Safety Report 10244576 (Version 1)
Quarter: 2014Q2

REPORT INFORMATION
  Report Type: Spontaneous
  Country: US (occurrence: US)
  Receive Date: 20140618
  Receipt Date: 20140618
  Transmission Date: 20141212
  Serious: No
  Sender: FDA-Public Use
  Company Number: US-BAYER-2014-089827

PATIENT
  Age: 72 Year
  Sex: Female

DRUGS (1)
  1. CLIMARA PRO [Suspect]
     Indication: MENOPAUSAL SYMPTOMS
     Dosage: UNK UNK, OW
     Route: 062
     Dates: start: 201405

REACTIONS (4)
  - Product quality issue [None]
  - Product physical issue [None]
  - Product adhesion issue [None]
  - Drug ineffective [None]
